FAERS Safety Report 14273816 (Version 1)
Quarter: 2017Q4

REPORT INFORMATION
  Report Type: Spontaneous
  Country: IT (occurrence: IT)
  Receive Date: 20171211
  Receipt Date: 20171211
  Transmission Date: 20180321
  Serious: Yes (Hospitalization, Other)
  Sender: FDA-Public Use
  Company Number: IT-OTSUKA-2015_009254

PATIENT
  Sex: Female

DRUGS (3)
  1. PRAZENE [Suspect]
     Active Substance: PRAZEPAM
     Indication: INTENTIONAL SELF-INJURY
     Dosage: 100 MG, TOTAL
     Route: 048
  2. ABILIFY [Suspect]
     Active Substance: ARIPIPRAZOLE
     Indication: INTENTIONAL SELF-INJURY
     Dosage: 150 MG, TOTAL
     Route: 048
  3. CARDIOASPIRIN [Suspect]
     Active Substance: ASPIRIN
     Indication: INTENTIONAL SELF-INJURY
     Dosage: 8 DF, TOTAL
     Route: 048

REACTIONS (3)
  - Drug abuse [Unknown]
  - Intentional self-injury [Unknown]
  - Intentional overdose [Unknown]
